FAERS Safety Report 19208165 (Version 1)
Quarter: 2021Q2

REPORT INFORMATION
  Report Type: Spontaneous
  Country: JP (occurrence: JP)
  Receive Date: 20210503
  Receipt Date: 20210503
  Transmission Date: 20210717
  Serious: Yes (Hospitalization)
  Sender: FDA-Public Use
  Company Number: JP-MYLANLABS-2021M1025927

PATIENT
  Age: 80 Year
  Sex: Female
  Weight: 42 kg

DRUGS (9)
  1. ETHAMBUTOL [Concomitant]
     Active Substance: ETHAMBUTOL HYDROCHLORIDE
     Indication: DISSEMINATED TUBERCULOSIS
     Route: 065
  2. RIFAMPICIN [Interacting]
     Active Substance: RIFAMPIN
     Indication: DISSEMINATED TUBERCULOSIS
     Route: 065
  3. ETHAMBUTOL [Concomitant]
     Active Substance: ETHAMBUTOL HYDROCHLORIDE
     Indication: PULMONARY TUBERCULOSIS
  4. RIFAMPICIN [Interacting]
     Active Substance: RIFAMPIN
     Indication: PULMONARY TUBERCULOSIS
  5. ISONIAZID. [Concomitant]
     Active Substance: ISONIAZID
     Indication: DISSEMINATED TUBERCULOSIS
     Route: 065
  6. PYRAZINAMIDE. [Concomitant]
     Active Substance: PYRAZINAMIDE
     Indication: DISSEMINATED TUBERCULOSIS
     Route: 065
  7. PYRAZINAMIDE. [Concomitant]
     Active Substance: PYRAZINAMIDE
     Indication: PULMONARY TUBERCULOSIS
  8. ISONIAZID. [Concomitant]
     Active Substance: ISONIAZID
     Indication: PULMONARY TUBERCULOSIS
  9. PREDNISOLONE. [Suspect]
     Active Substance: PREDNISOLONE
     Indication: IMMUNE THROMBOCYTOPENIA
     Dosage: 20 MILLIGRAM, DOSE: 0.5 MG/KG
     Route: 065

REACTIONS (3)
  - Labelled drug-drug interaction medication error [Unknown]
  - Therapeutic product effect decreased [Unknown]
  - Drug level decreased [Unknown]
